FAERS Safety Report 12727884 (Version 2)
Quarter: 2016Q4

REPORT INFORMATION
  Report Type: Spontaneous
  Country: US (occurrence: US)
  Receive Date: 20160909
  Receipt Date: 20161014
  Transmission Date: 20170207
  Serious: Yes (Other)
  Sender: FDA-Public Use
  Company Number: US-ASTRAZENECA-2016SE93278

PATIENT
  Age: 65 Year
  Sex: Male

DRUGS (3)
  1. ANASTROZOLE. [Suspect]
     Active Substance: ANASTROZOLE
     Route: 048
     Dates: start: 201603
  2. IBRANCE [Suspect]
     Active Substance: PALBOCICLIB
     Route: 065
  3. IBRANCE [Suspect]
     Active Substance: PALBOCICLIB
     Dosage: 125, UNKNOWN
     Route: 065
     Dates: start: 201603

REACTIONS (5)
  - Metastases to lymph nodes [Unknown]
  - Pancytopenia [Unknown]
  - Metastases to bone [Unknown]
  - Off label use [Unknown]
  - Fatigue [Unknown]
